FAERS Safety Report 8820515 (Version 1)
Quarter: 2012Q4

REPORT INFORMATION
  Report Type: 
  Country: MX (occurrence: MX)
  Receive Date: 20121002
  Receipt Date: 20121002
  Transmission Date: 20130627
  Serious: Yes (Death, Hospitalization)
  Sender: FDA-Public Use
  Company Number: MX-UCBSA-067664

PATIENT
  Age: 87 Year
  Sex: Male
  Weight: 48 kg

DRUGS (7)
  1. NUBRENZA [Suspect]
     Indication: PARKINSON^S DISEASE
     Dosage: 2 MG PATCH
     Route: 062
     Dates: start: 20110801
  2. NUBRENZA [Suspect]
     Indication: PARKINSON^S DISEASE
     Dosage: increased periodically up until 6 mg
     Route: 062
     Dates: end: 20120905
  3. NITROGLYCERINE [Concomitant]
     Indication: PROPHYLAXIS
     Dates: start: 20050201, end: 20120905
  4. SIFROL [Concomitant]
     Indication: PARKINSON^S DISEASE
     Route: 048
     Dates: start: 20080401, end: 20120905
  5. STALEVO [Concomitant]
     Indication: PARKINSON^S DISEASE
     Dosage: DAILY DOSE: 150/37.5/600 MG (50/12.5/200 MG THREE TIMES A DAY)
     Route: 048
     Dates: start: 20080401, end: 20120905
  6. METOPROLOL [Concomitant]
     Indication: HYPERTENSION
     Route: 048
     Dates: start: 20050201, end: 20120905
  7. PRAVASTATIN [Concomitant]
     Indication: HYPERTENSION
     Route: 048
     Dates: start: 20050201, end: 20120905

REACTIONS (6)
  - Cardio-respiratory arrest [Fatal]
  - Sepsis [Fatal]
  - Pneumonia [Fatal]
  - Respiratory distress [Unknown]
  - Dehydration [Unknown]
  - Gastroenteritis [Unknown]
